FAERS Safety Report 9766749 (Version 2)
Quarter: 2014Q4

REPORT INFORMATION
  Report Type: Spontaneous
  Country: US (occurrence: US)
  Receive Date: 20131217
  Receipt Date: 20141217
  Transmission Date: 20150529
  Serious: No
  Sender: FDA-Public Use
  Company Number: US-GLAXOSMITHKLINE-A1032354A

PATIENT
  Age: 67 Year
  Sex: Male
  Weight: 85.9 kg

DRUGS (3)
  1. VOTRIENT [Interacting]
     Active Substance: PAZOPANIB HYDROCHLORIDE
     Indication: METASTASES TO LUNG
  2. VOTRIENT [Suspect]
     Active Substance: PAZOPANIB HYDROCHLORIDE
     Indication: RENAL CANCER
     Dosage: 200 MG TABLETS 4 TABLETS OR 800 MG
     Route: 048
  3. GRAPEFRUIT JUICE [Interacting]
     Active Substance: GRAPEFRUIT JUICE
     Route: 065

REACTIONS (7)
  - Anal fissure [Unknown]
  - Labelled drug-food interaction medication error [Unknown]
  - Blood pressure increased [Unknown]
  - Adverse drug reaction [Unknown]
  - Dysgeusia [Unknown]
  - Rash [Unknown]
  - Glossodynia [Unknown]

NARRATIVE: CASE EVENT DATE: 20130623
